FAERS Safety Report 24017550 (Version 1)
Quarter: 2024Q2

REPORT INFORMATION
  Report Type: Spontaneous
  Country: US (occurrence: US)
  Receive Date: 20240627
  Receipt Date: 20240627
  Transmission Date: 20240716
  Serious: Yes (Hospitalization)
  Sender: FDA-Public Use
  Company Number: US-LUPIN PHARMACEUTICALS INC.-2024-05439

PATIENT
  Age: 63 Year
  Sex: Male

DRUGS (4)
  1. VANCOMYCIN [Suspect]
     Active Substance: VANCOMYCIN
     Indication: Staphylococcal infection
     Dosage: UNK
     Route: 065
     Dates: start: 202102, end: 20210226
  2. DALBAVANCIN [Suspect]
     Active Substance: DALBAVANCIN
     Indication: Staphylococcal infection
     Dosage: 1500 MG
     Route: 065
     Dates: start: 20210226, end: 2021
  3. DALBAVANCIN [Suspect]
     Active Substance: DALBAVANCIN
     Dosage: 1000 MG
     Route: 065
     Dates: start: 20210315, end: 2021
  4. DAPTOMYCIN [Suspect]
     Active Substance: DAPTOMYCIN
     Indication: Staphylococcal infection
     Dosage: UNK
     Route: 065
     Dates: start: 2021, end: 2021

REACTIONS (1)
  - Multiple-drug resistance [Unknown]

NARRATIVE: CASE EVENT DATE: 20210201
